FAERS Safety Report 23067214 (Version 1)
Quarter: 2023Q4

REPORT INFORMATION
  Report Type: Spontaneous
  Country: US (occurrence: US)
  Receive Date: 20231016
  Receipt Date: 20231016
  Transmission Date: 20240109
  Serious: Yes (Life-Threatening, Hospitalization)
  Sender: FDA-Public Use
  Company Number: US-BRISTOL-MYERS SQUIBB COMPANY-2023-142527

PATIENT
  Age: 74 Year
  Sex: Female

DRUGS (1)
  1. SPRYCEL [Suspect]
     Active Substance: DASATINIB
     Indication: Acute lymphocytic leukaemia
     Route: 048
     Dates: start: 20230412

REACTIONS (5)
  - Loss of consciousness [Unknown]
  - Pulmonary oedema [Unknown]
  - Asthenia [Unknown]
  - Gait inability [Unknown]
  - General physical health deterioration [Unknown]
